FAERS Safety Report 5218659-8 (Version None)
Quarter: 2007Q1

REPORT INFORMATION
  Report Type: 
  Country: None (occurrence: None)
  Receive Date: 20070122
  Receipt Date: 20070111
  Transmission Date: 20070707
  Serious: Yes (Other)
  Sender: FDA-Public Use
  Company Number: B0454562A

PATIENT
  Age: 67 Year
  Sex: Male

DRUGS (1)
  1. AUGMENTIN '250' [Suspect]

REACTIONS (3)
  - CHOLESTASIS [None]
  - HEPATOTOXICITY [None]
  - HYPERSENSITIVITY [None]
